FAERS Safety Report 13530211 (Version 1)
Quarter: 2017Q2

REPORT INFORMATION
  Report Type: Spontaneous
  Country: US (occurrence: US)
  Receive Date: 20170509
  Receipt Date: 20170509
  Transmission Date: 20170830
  Serious: No
  Sender: FDA-Public Use
  Company Number: US-UCBSA-2016024425

PATIENT
  Age: 73 Year
  Sex: Female
  Weight: 73 kg

DRUGS (3)
  1. SINEMET [Concomitant]
     Active Substance: CARBIDOPA\LEVODOPA
     Indication: PARKINSON^S DISEASE
     Dosage: UNK DOSE
     Dates: start: 2012
  2. NEUPRO [Suspect]
     Active Substance: ROTIGOTINE
     Indication: PARKINSON^S DISEASE
     Dosage: 2 MG, UNK
  3. NEUPRO [Suspect]
     Active Substance: ROTIGOTINE
     Dosage: 4 MG, UNK
     Dates: start: 201606

REACTIONS (3)
  - Confusional state [Not Recovered/Not Resolved]
  - Hallucination [Recovered/Resolved]
  - Off label use [Unknown]

NARRATIVE: CASE EVENT DATE: 201505
